FAERS Safety Report 9033123 (Version 1)
Quarter: 2013Q1

REPORT INFORMATION
  Report Type: Spontaneous
  Country: US (occurrence: US)
  Receive Date: 20130128
  Receipt Date: 20130128
  Transmission Date: 20140127
  Serious: Yes (Hospitalization)
  Sender: FDA-Public Use
  Company Number: US-TEVA-382189USA

PATIENT
  Age: 41 Year
  Sex: Male

DRUGS (3)
  1. MIRTAZAPINE [Suspect]
     Dosage: 15MG
     Route: 065
  2. TRAZODONE [Suspect]
     Indication: INSOMNIA
     Dosage: 100MG AT BEDTIME
     Route: 065
  3. TRAZODONE [Suspect]
     Indication: INSOMNIA
     Dosage: 200MG AT BEDTIME
     Route: 065

REACTIONS (1)
  - Priapism [Recovered/Resolved]
